FAERS Safety Report 4301291-8 (Version None)
Quarter: 2004Q1

REPORT INFORMATION
  Report Type: 
  Country: None (occurrence: None)
  Receive Date: 20040219
  Receipt Date: 20040211
  Transmission Date: 20041129
  Serious: Yes (Other)
  Sender: FDA-Public Use
  Company Number: BE-JNJFOC-20040202601

PATIENT
  Age: 20 Year
  Sex: Female

DRUGS (4)
  1. SPORANOX [Suspect]
     Dosage: ORAL; 32 MG, 1 IN 1 DAY
     Route: 048
  2. MEDROL [Concomitant]
  3. CLAVERSAL (MESALAZINE) [Concomitant]
  4. YASMIN (PETIBELLE FILMTABLETTEN) [Concomitant]

REACTIONS (8)
  - ARTHRALGIA [None]
  - BLOOD GLUCOSE INCREASED [None]
  - HEART RATE INCREASED [None]
  - MYALGIA [None]
  - NEUTROPHIL PERCENTAGE INCREASED [None]
  - PLATELET COUNT INCREASED [None]
  - RASH [None]
  - WHITE BLOOD CELL COUNT INCREASED [None]
